FAERS Safety Report 10905788 (Version 3)
Quarter: 2015Q2

REPORT INFORMATION
  Report Type: Spontaneous
  Country: IT (occurrence: IT)
  Receive Date: 20150311
  Receipt Date: 20150402
  Transmission Date: 20150821
  Serious: Yes (Other)
  Sender: FDA-Public Use
  Company Number: IT-ABBVIE-15P-083-1344122-00

PATIENT
  Age: 43 Year
  Sex: Female

DRUGS (2)
  1. GONAL-F [Suspect]
     Active Substance: FOLLITROPIN
     Indication: IN VITRO FERTILISATION
     Route: 065
  2. ENANTON [Suspect]
     Active Substance: LEUPROLIDE ACETATE
     Indication: IN VITRO FERTILISATION
     Route: 065

REACTIONS (5)
  - Scleral discolouration [Recovered/Resolved]
  - Retinal deposits [Recovered/Resolved]
  - Visual acuity reduced [Unknown]
  - Retinal pigment epitheliopathy [Unknown]
  - Retinopathy [Unknown]
